FAERS Safety Report 24664866 (Version 1)
Quarter: 2024Q4

REPORT INFORMATION
  Report Type: Spontaneous
  Country: BE (occurrence: BE)
  Receive Date: 20241126
  Receipt Date: 20241126
  Transmission Date: 20250115
  Serious: No
  Sender: BLUEPRINT MEDICINES
  Company Number: BE-Blueprint Medicines Corporation-SO-BE-2024-002425

PATIENT

DRUGS (1)
  1. AVAPRITINIB [Suspect]
     Active Substance: AVAPRITINIB
     Indication: Product used for unknown indication
     Route: 065

REACTIONS (1)
  - Adverse drug reaction [Unknown]
